FAERS Safety Report 5677980-X (Version None)
Quarter: 2008Q1

REPORT INFORMATION
  Report Type: 
  Country: None (occurrence: None)
  Receive Date: 20080319
  Receipt Date: 20080306
  Transmission Date: 20080703
  Serious: Yes (Hospitalization)
  Sender: FDA-Public Use
  Company Number: 2008BI006106

PATIENT
  Age: 60 Year
  Sex: Female
  Weight: 54.4316 kg

DRUGS (1)
  1. AVONEX [Suspect]
     Indication: MULTIPLE SCLEROSIS
     Dosage: 30 UG; QW; IM
     Route: 030
     Dates: start: 20040101

REACTIONS (7)
  - ASTHENIA [None]
  - DISEASE RECURRENCE [None]
  - FOOT FRACTURE [None]
  - HIP FRACTURE [None]
  - INTESTINAL FUNCTIONAL DISORDER [None]
  - MEMORY IMPAIRMENT [None]
  - NEURALGIA [None]
